FAERS Safety Report 6189916-6 (Version None)
Quarter: 2009Q2

REPORT INFORMATION
  Report Type: 
  Country: None (occurrence: None)
  Receive Date: 20090514
  Receipt Date: 20090511
  Transmission Date: 20091009
  Serious: Yes (Hospitalization)
  Sender: FDA-Public Use
  Company Number: US-GILEAD-2009-0021558

PATIENT
  Age: 36 Year
  Sex: Male

DRUGS (12)
  1. LETAIRIS [Suspect]
     Route: 048
     Dates: start: 20080201
  2. EMTRICITABINE/TENOFOVIR DISOPROXIL FUMARATE [Concomitant]
  3. SILDENAFIL CITRATE [Concomitant]
  4. DIGOXIN [Concomitant]
  5. FUROSEMIDE [Concomitant]
  6. SPIRONOLACTONE [Concomitant]
  7. ALBUTEROL [Concomitant]
  8. CIPROFLOXACIN HCL [Concomitant]
  9. SERTRALINE HCL [Concomitant]
  10. BUPROPION HCL [Concomitant]
  11. LORAZEPAM [Concomitant]
  12. NICOTINE [Concomitant]

REACTIONS (1)
  - RIGHT VENTRICULAR FAILURE [None]
